FAERS Safety Report 4986943-9 (Version None)
Quarter: 2006Q2

REPORT INFORMATION
  Report Type: 
  Country: None (occurrence: None)
  Receive Date: 20060501
  Receipt Date: 20060329
  Transmission Date: 20061013
  Serious: Yes (Hospitalization, Other)
  Sender: FDA-Public Use
  Company Number: PHNR2006AU00637

PATIENT
  Age: 43 Year
  Sex: Male

DRUGS (3)
  1. CLOZARIL [Suspect]
     Indication: SCHIZOPHRENIA
     Dosage: 12.5-150 MG DAILY
     Dates: start: 20060307, end: 20060324
  2. VALPROAT ^AZUPHARMA^ [Concomitant]
  3. VITAMINS [Concomitant]

REACTIONS (4)
  - CARDIAC DISORDER [None]
  - ECHOCARDIOGRAM ABNORMAL [None]
  - TROPONIN INCREASED [None]
  - VENTRICULAR FAILURE [None]
